FAERS Safety Report 5486521-1 (Version None)
Quarter: 2007Q3

REPORT INFORMATION
  Report Type: 
  Country: None (occurrence: None)
  Receive Date: 20070919
  Receipt Date: 20070712
  Transmission Date: 20080115
  Serious: No
  Sender: FDA-Public Use
  Company Number: 2007RL000315

PATIENT
  Age: 52 Year
  Sex: Female
  Weight: 71.6683 kg

DRUGS (1)
  1. OMACOR [Suspect]
     Indication: ARTHRALGIA
     Dosage: 2 GM;QD;PO
     Route: 048
     Dates: start: 20070702, end: 20070711

REACTIONS (6)
  - ABDOMINAL DISTENSION [None]
  - ANGIOPATHY [None]
  - GASTROOESOPHAGEAL REFLUX DISEASE [None]
  - MUSCULOSKELETAL CHEST PAIN [None]
  - OFF LABEL USE [None]
  - THERAPEUTIC RESPONSE UNEXPECTED [None]
